FAERS Safety Report 4305839-9 (Version None)
Quarter: 2004Q1

REPORT INFORMATION
  Report Type: 
  Country: None (occurrence: None)
  Receive Date: 20040225
  Receipt Date: 20040219
  Transmission Date: 20041129
  Serious: Yes (Hospitalization)
  Sender: FDA-Public Use
  Company Number: TPA2004A00061

PATIENT
  Age: 82 Year
  Sex: Female
  Weight: 51.2565 kg

DRUGS (7)
  1. ACTOS [Suspect]
     Indication: DIABETES MELLITUS NON-INSULIN-DEPENDENT
     Dosage: 30 MG, 1 IN 1 D, PER ORAL; 45 MG, 1 IN 1 DAY, PER ORAL
     Route: 048
     Dates: start: 20031029, end: 20031210
  2. ACTOS [Suspect]
     Indication: DIABETES MELLITUS NON-INSULIN-DEPENDENT
     Dosage: 30 MG, 1 IN 1 D, PER ORAL; 45 MG, 1 IN 1 DAY, PER ORAL
     Route: 048
     Dates: start: 20031210
  3. PAXIL CR [Concomitant]
  4. FOSAMAX [Concomitant]
  5. TYLENOL  #3 (GALENIC/PARACETAMOL/CODEINE) [Concomitant]
  6. ZESTORETIC (LISINOPRIL) [Concomitant]
  7. TIAZAC CD (DILTIAZEM) [Concomitant]

REACTIONS (4)
  - FALL [None]
  - PELVIC FRACTURE [None]
  - RENAL IMPAIRMENT [None]
  - WEIGHT INCREASED [None]
